FAERS Safety Report 22907091 (Version 5)
Quarter: 2023Q4

REPORT INFORMATION
  Report Type: Report from Study
  Country: CN (occurrence: None)
  Receive Date: 20230905
  Receipt Date: 20231003
  Transmission Date: 20240110
  Serious: Yes (Hospitalization)
  Sender: FDA-Public Use
  Company Number: CN-Eisai Medical Research-EC-2023-147935

PATIENT
  Age: 71 Year
  Sex: Male
  Weight: 58 kg

DRUGS (8)
  1. LENVATINIB [Suspect]
     Active Substance: LENVATINIB
     Indication: Clear cell renal cell carcinoma
     Route: 048
     Dates: start: 20230518, end: 20230531
  2. LENVATINIB [Suspect]
     Active Substance: LENVATINIB
     Route: 048
     Dates: start: 20230706, end: 20230815
  3. PEMBROLIZUMAB [Suspect]
     Active Substance: PEMBROLIZUMAB
     Indication: Clear cell renal cell carcinoma
     Route: 042
     Dates: start: 20230518, end: 20230518
  4. PEMBROLIZUMAB [Suspect]
     Active Substance: PEMBROLIZUMAB
     Route: 042
     Dates: start: 20230706
  5. BELZUTIFAN [Suspect]
     Active Substance: BELZUTIFAN
     Indication: Clear cell renal cell carcinoma
     Route: 048
     Dates: start: 20230518, end: 20230531
  6. BELZUTIFAN [Suspect]
     Active Substance: BELZUTIFAN
     Route: 048
     Dates: start: 20230706, end: 20230815
  7. SHENG XUE BAO [Concomitant]
     Dates: start: 20230630
  8. YUN NAN BAI YAO [ACONITUM KUSNEZOFFII ROOT;HERBAL NOS] [Concomitant]
     Dates: start: 20230630, end: 20230720

REACTIONS (4)
  - Gamma-glutamyltransferase increased [Recovering/Resolving]
  - Vomiting [Recovered/Resolved]
  - Bilirubin conjugated increased [Recovered/Resolved]
  - Blood alkaline phosphatase increased [Recovered/Resolved]

NARRATIVE: CASE EVENT DATE: 20230705
